FAERS Safety Report 4430871-4 (Version None)
Quarter: 2004Q3

REPORT INFORMATION
  Report Type: 
  Country: None (occurrence: None)
  Receive Date: 20040823
  Receipt Date: 20040810
  Transmission Date: 20050211
  Serious: Yes (Hospitalization)
  Sender: FDA-Public Use
  Company Number: FR-GLAXOSMITHKLINE-B0342144A

PATIENT
  Age: 23 Year
  Sex: Male
  Weight: 60 kg

DRUGS (10)
  1. ZANTAC [Suspect]
     Route: 042
     Dates: start: 20040704
  2. TRACRIUM [Suspect]
     Route: 042
     Dates: start: 20040704, end: 20040707
  3. SURGAM [Suspect]
     Route: 048
     Dates: start: 20040702, end: 20040703
  4. FRAXIPARINE [Suspect]
     Route: 058
     Dates: start: 20040704
  5. SUFENTA [Suspect]
     Route: 065
     Dates: start: 20040704
  6. IMMUNOGLOBULIN ANTITETANUS [Suspect]
     Dosage: 2UNIT PER DAY
     Route: 030
     Dates: start: 20040702, end: 20040704
  7. AMOXICILLIN [Suspect]
     Route: 065
     Dates: start: 20040704, end: 20040708
  8. AUGMENTIN '125' [Concomitant]
     Route: 065
     Dates: start: 20040708, end: 20040715
  9. VALIUM [Concomitant]
     Route: 042
     Dates: start: 20040707
  10. NIMBEX [Concomitant]
     Route: 042
     Dates: start: 20040707

REACTIONS (7)
  - EOSINOPHILIA [None]
  - HAEMATURIA [None]
  - HYPERTENSION [None]
  - NEPHRITIS INTERSTITIAL [None]
  - OLIGURIA [None]
  - RASH GENERALISED [None]
  - TETANUS [None]
